FAERS Safety Report 12058497 (Version 2)
Quarter: 2016Q1

REPORT INFORMATION
  Report Type: Spontaneous
  Country: US (occurrence: US)
  Receive Date: 20160210
  Receipt Date: 20160211
  Transmission Date: 20160526
  Serious: Yes (Other)
  Sender: FDA-Public Use
  Company Number: US-BAUSCH-BL-2015-025992

PATIENT
  Age: 67 Year
  Sex: Female
  Weight: 57.66 kg

DRUGS (2)
  1. NU-DERM CLEAR [Suspect]
     Active Substance: HYDROQUINONE
     Indication: PRODUCT USED FOR UNKNOWN INDICATION
     Dosage: RECOMMENDED TWICE A DAY
     Route: 061
     Dates: start: 20150417
  2. NU-DERM EXFODERM FORTE [Suspect]
     Active Substance: COSMETICS
     Indication: PRODUCT USED FOR UNKNOWN INDICATION
     Dosage: RECOMMENDED ONCE A DAY
     Route: 061
     Dates: start: 20150417

REACTIONS (1)
  - Rosacea [Recovering/Resolving]

NARRATIVE: CASE EVENT DATE: 201504
